FAERS Safety Report 24191773 (Version 1)
Quarter: 2024Q3

REPORT INFORMATION
  Report Type: Spontaneous
  Country: CN (occurrence: CN)
  Receive Date: 20240809
  Receipt Date: 20240809
  Transmission Date: 20241017
  Serious: Yes (Life-Threatening, Other)
  Sender: SANOFI AVENTIS
  Company Number: CN-SA-SAC20240807000033

PATIENT
  Age: 66 Year
  Sex: Male

DRUGS (8)
  1. TAXOTERE [Suspect]
     Active Substance: DOCETAXEL
     Indication: Lung neoplasm malignant
     Dosage: 120 MG, QD
     Route: 041
     Dates: start: 20240801, end: 20240801
  2. TAXOTERE [Suspect]
     Active Substance: DOCETAXEL
     Indication: Lymphoma
  3. TAXOTERE [Suspect]
     Active Substance: DOCETAXEL
     Indication: Metastases to lung
  4. TAXOTERE [Suspect]
     Active Substance: DOCETAXEL
     Indication: Cardiac failure
  5. TAXOTERE [Suspect]
     Active Substance: DOCETAXEL
     Indication: Tricuspid valve incompetence
  6. TAXOTERE [Suspect]
     Active Substance: DOCETAXEL
     Indication: Venous thrombosis limb
  7. TAXOTERE [Suspect]
     Active Substance: DOCETAXEL
     Indication: Renal cyst
  8. TAXOTERE [Suspect]
     Active Substance: DOCETAXEL
     Indication: Hepatic cyst

REACTIONS (3)
  - Skin discolouration [Recovering/Resolving]
  - Dyspnoea [Recovering/Resolving]
  - Chest discomfort [Recovering/Resolving]

NARRATIVE: CASE EVENT DATE: 20240801
